FAERS Safety Report 8936755 (Version 1)
Quarter: 2012Q4

REPORT INFORMATION
  Report Type: 
  Country: US (occurrence: US)
  Receive Date: 20121130
  Receipt Date: 20121130
  Transmission Date: 20130627
  Serious: Yes (Other)
  Sender: FDA-Public Use
  Company Number: US-PFIZER INC-2012300326

PATIENT
  Age: 52 Year
  Sex: Female
  Weight: 59 kg

DRUGS (7)
  1. LYRICA [Suspect]
     Indication: PAIN
     Dosage: 150 mg, 2x/day
     Route: 048
     Dates: start: 201211, end: 201211
  2. MAXIDE [Concomitant]
     Indication: BLOOD PRESSURE HIGH
     Dosage: UNK
  3. LORTAB [Concomitant]
     Indication: BACK PAIN
     Dosage: UNK
  4. DIAZEPAM [Concomitant]
     Indication: PANIC ATTACKS
     Dosage: 5 mg, as needed
  5. DIAZEPAM [Concomitant]
     Indication: ANXIETY
  6. LORAZEPAM [Concomitant]
     Indication: PANIC ATTACKS
     Dosage: UNK, daily
  7. LORAZEPAM [Concomitant]
     Indication: ANXIETY

REACTIONS (9)
  - Loss of consciousness [Unknown]
  - Panic attack [Unknown]
  - Oedema mouth [Unknown]
  - Cyanosis [Unknown]
  - Visual impairment [Recovered/Resolved]
  - Malaise [Unknown]
  - Dizziness [Recovered/Resolved]
  - Feeling abnormal [Unknown]
  - Fear [Unknown]
